FAERS Safety Report 17653506 (Version 3)
Quarter: 2020Q2

REPORT INFORMATION
  Report Type: Spontaneous
  Country: US (occurrence: US)
  Receive Date: 20200410
  Receipt Date: 20200507
  Transmission Date: 20200713
  Serious: No
  Sender: FDA-Public Use
  Company Number: US-SA-2020SA087718

PATIENT
  Age: 62 Year
  Sex: Female

DRUGS (1)
  1. DUPIXENT [Suspect]
     Active Substance: DUPILUMAB
     Indication: ECZEMA
     Dosage: 300 MG, QOW
     Dates: start: 2019, end: 20200306

REACTIONS (3)
  - Rash pruritic [Unknown]
  - Product dose omission [Unknown]
  - Erythema [Unknown]

NARRATIVE: CASE EVENT DATE: 20200306
